FAERS Safety Report 8292156-8 (Version None)
Quarter: 2012Q2

REPORT INFORMATION
  Report Type: 
  Country: None (occurrence: None)
  Receive Date: 20120417
  Receipt Date: 20110803
  Transmission Date: 20120825
  Serious: No
  Sender: FDA-Public Use
  Company Number: US-ASTRAZENECA-2011SE46495

PATIENT
  Age: 70 Year
  Sex: Female

DRUGS (4)
  1. NEXIUM [Suspect]
     Indication: GASTROOESOPHAGEAL REFLUX DISEASE
     Route: 048
     Dates: start: 20010101
  2. NEXIUM [Suspect]
     Route: 048
     Dates: start: 20110701
  3. LEVOTHYROXINE SODIUM [Concomitant]
  4. NADOLOL [Concomitant]

REACTIONS (2)
  - SWELLING [None]
  - JOINT SWELLING [None]
